FAERS Safety Report 8571635 (Version 6)
Quarter: 2013Q2

REPORT INFORMATION
  Report Type: Spontaneous
  Country: US (occurrence: US)
  Receive Date: 20120521
  Receipt Date: 20130603
  Transmission Date: 20140414
  Serious: Yes (Hospitalization, Disabling, Other)
  Sender: FDA-Public Use
  Company Number: US-MSD-1205USA02842

PATIENT
  Sex: Male
  Weight: 79.3 kg

DRUGS (3)
  1. FOSAMAX [Suspect]
     Indication: OSTEOPOROSIS
     Dosage: 35 MG, UNK
     Route: 048
     Dates: start: 20050427, end: 20060513
  2. FOSAMAX [Suspect]
     Dosage: 70 MG, QW
     Route: 048
     Dates: start: 20060602, end: 20110124
  3. ALENDRONATE SODIUM [Suspect]
     Dosage: 70 MG, UNK
     Route: 048
     Dates: start: 20070307, end: 201104

REACTIONS (42)
  - Stress fracture [Not Recovered/Not Resolved]
  - Femur fracture [Not Recovered/Not Resolved]
  - Low turnover osteopathy [Not Recovered/Not Resolved]
  - Osteoporosis [Not Recovered/Not Resolved]
  - Open reduction of fracture [Recovering/Resolving]
  - Renal failure acute [Unknown]
  - Stent placement [Unknown]
  - Cholecystectomy [Unknown]
  - Percutaneous coronary intervention [Unknown]
  - Shoulder arthroplasty [Unknown]
  - Appendicectomy [Unknown]
  - Implantable defibrillator replacement [Unknown]
  - Femur fracture [Recovering/Resolving]
  - Dizziness [Unknown]
  - Chronic obstructive pulmonary disease [Not Recovered/Not Resolved]
  - Vascular calcification [Unknown]
  - Gait disturbance [Unknown]
  - Bronchitis [Unknown]
  - Chest pain [Unknown]
  - Dyspnoea [Unknown]
  - Fatigue [Unknown]
  - Peptic ulcer [Not Recovered/Not Resolved]
  - Bronchial hyperreactivity [Unknown]
  - Asthma [Unknown]
  - Hyperlipidaemia [Unknown]
  - Rheumatoid arthritis [Not Recovered/Not Resolved]
  - Hypotension [Unknown]
  - Dyslipidaemia [Unknown]
  - Rotator cuff syndrome [Unknown]
  - Osteoarthritis [Not Recovered/Not Resolved]
  - Alcohol abuse [Unknown]
  - Transient ischaemic attack [Unknown]
  - Ventricular tachycardia [Not Recovered/Not Resolved]
  - Atrioventricular block second degree [Not Recovered/Not Resolved]
  - Ischaemic cardiomyopathy [Not Recovered/Not Resolved]
  - Toxicity to various agents [Unknown]
  - Tooth extraction [Unknown]
  - Dental caries [Unknown]
  - Inflammatory pain [Unknown]
  - Herpes virus infection [Unknown]
  - Osteopenia [Unknown]
  - Arthralgia [Unknown]
